FAERS Safety Report 5612713-4 (Version None)
Quarter: 2008Q1

REPORT INFORMATION
  Report Type: 
  Country: None (occurrence: None)
  Receive Date: 20080204
  Receipt Date: 20080130
  Transmission Date: 20080703
  Serious: Yes (Death, Hospitalization)
  Sender: FDA-Public Use
  Company Number: PHEH2008US01411

PATIENT
  Age: 79 Year
  Sex: Male

DRUGS (1)
  1. TEKTURNA [Suspect]
     Dosage: 150 MG, QD
     Route: 048
     Dates: start: 20070501

REACTIONS (6)
  - ANAEMIA [None]
  - COLON CANCER [None]
  - COLON OPERATION [None]
  - DEATH [None]
  - HAEMORRHAGE [None]
  - RESPIRATORY FAILURE [None]
